FAERS Safety Report 8536826-2 (Version None)
Quarter: 2012Q3

REPORT INFORMATION
  Report Type: 
  Country: None (occurrence: None)
  Receive Date: 20120725
  Receipt Date: 20120717
  Transmission Date: 20120928
  Serious: Yes (Hospitalization)
  Sender: FDA-Public Use
  Company Number: FR-ELI_LILLY_AND_COMPANY-FR201205002853

PATIENT
  Sex: Female

DRUGS (7)
  1. ZOFRAN [Concomitant]
     Indication: PROPHYLAXIS OF NAUSEA AND VOMITING
     Dosage: UNK
     Route: 048
     Dates: end: 20120110
  2. TAXOTERE [Concomitant]
     Indication: GERM CELL CANCER
     Dosage: 150 MG, UNK
     Route: 042
     Dates: end: 20120110
  3. ATARAX [Concomitant]
     Indication: PREMEDICATION
     Dosage: 50 MG, UNK
     Route: 048
     Dates: end: 20120110
  4. PLITICAN [Concomitant]
     Indication: PROPHYLAXIS OF NAUSEA AND VOMITING
     Dosage: UNK
     Route: 042
     Dates: end: 20120110
  5. GEMZAR [Suspect]
     Dosage: 1100 MG, UNK
     Dates: start: 20120110
  6. SOLU-MEDROL [Concomitant]
     Indication: PREMEDICATION
     Dosage: 60 MG, UNK
     Route: 042
     Dates: end: 20120110
  7. GEMZAR [Suspect]
     Indication: GERM CELL CANCER
     Dosage: 1100 MG, UNK
     Route: 042
     Dates: start: 20120103

REACTIONS (3)
  - ERYTHEMA [None]
  - PALMAR-PLANTAR ERYTHRODYSAESTHESIA SYNDROME [None]
  - ARTHRALGIA [None]
